FAERS Safety Report 17901798 (Version 1)
Quarter: 2020Q2

REPORT INFORMATION
  Report Type: Spontaneous
  Country: US (occurrence: US)
  Receive Date: 20200616
  Receipt Date: 20200616
  Transmission Date: 20200714
  Serious: No
  Sender: FDA-Public Use
  Company Number: US-BIOMARINAP-US-2020-130003

PATIENT
  Sex: Female

DRUGS (2)
  1. PHENYLADE [Concomitant]
     Indication: PHENYLKETONURIA
     Dosage: UNK
     Route: 048
     Dates: start: 20200404
  2. KUVAN [Suspect]
     Active Substance: SAPROPTERIN DIHYDROCHLORIDE
     Indication: PHENYLKETONURIA
     Dosage: 2200 MILLIGRAM, QD
     Route: 048
     Dates: start: 20200507

REACTIONS (1)
  - Maternal exposure during pregnancy [Unknown]
